FAERS Safety Report 14805593 (Version 2)
Quarter: 2018Q2

REPORT INFORMATION
  Report Type: Spontaneous
  Country: JP (occurrence: JP)
  Receive Date: 20180425
  Receipt Date: 20180528
  Transmission Date: 20180711
  Serious: Yes (Other)
  Sender: FDA-Public Use
  Company Number: PHJP2018JP009366

PATIENT
  Age: 70 Year
  Sex: Female

DRUGS (2)
  1. MEMANTINE. [Concomitant]
     Active Substance: MEMANTINE
     Indication: DEMENTIA ALZHEIMER^S TYPE
     Dosage: UNK
     Route: 065
  2. EXELON PATCH [Suspect]
     Active Substance: RIVASTIGMINE
     Indication: DEMENTIA ALZHEIMER^S TYPE
     Dosage: UNK
     Route: 062

REACTIONS (4)
  - Mini mental status examination abnormal [Unknown]
  - Poverty of speech [Unknown]
  - Dementia [Unknown]
  - Somnolence [Unknown]
